FAERS Safety Report 9068967 (Version 1)
Quarter: 2013Q1

REPORT INFORMATION
  Report Type: Spontaneous
  Country: US (occurrence: None)
  Receive Date: 20130213
  Receipt Date: 20130213
  Transmission Date: 20140127
  Serious: Yes (Life-Threatening, Hospitalization)
  Sender: FDA-Public Use
  Company Number: None

PATIENT
  Age: 62 Year
  Sex: Male
  Weight: 57.83 kg

DRUGS (1)
  1. VANCOMYCIN [Suspect]
     Indication: SURGERY
     Route: 042
     Dates: start: 20130211, end: 20130211

REACTIONS (2)
  - Anaphylactic reaction [None]
  - Hypotension [None]
